FAERS Safety Report 4586101-6 (Version None)
Quarter: 2005Q1

REPORT INFORMATION
  Report Type: 
  Country: None (occurrence: None)
  Receive Date: 20050125
  Receipt Date: 20041020
  Transmission Date: 20050727
  Serious: No
  Sender: FDA-Public Use
  Company Number: USA041081381

PATIENT
  Age: 65 Year
  Sex: Female
  Weight: 77 kg

DRUGS (4)
  1. FORTEO [Suspect]
     Indication: BONE DENSITY DECREASED
     Dosage: 20 UG/1 DAY
     Dates: start: 20041008
  2. PREDNISONE [Concomitant]
  3. OXYCONTIN [Concomitant]
  4. FAMVIR (PENCICLOVIR) [Concomitant]

REACTIONS (6)
  - ARTHRALGIA [None]
  - FALL [None]
  - HEADACHE [None]
  - NAIL DISORDER [None]
  - PHOTOPSIA [None]
  - VITREOUS FLOATERS [None]
